FAERS Safety Report 4976520-8 (Version None)
Quarter: 2006Q2

REPORT INFORMATION
  Report Type: 
  Country: None (occurrence: None)
  Receive Date: 20060418
  Receipt Date: 20060418
  Transmission Date: 20061013
  Serious: Yes (Life-Threatening, Hospitalization)
  Sender: FDA-Public Use
  Company Number: None

PATIENT
  Sex: Female

DRUGS (9)
  1. CARBATROL CR 300MG [Suspect]
     Indication: CONVULSION
     Dosage: 600MG BID PO
     Route: 048
     Dates: start: 20031009, end: 20060413
  2. DARVOCET-N 50 [Suspect]
     Indication: ANKLE FRACTURE
     Dosage: 50MG PRN PO
     Route: 048
     Dates: start: 20060412, end: 20060413
  3. DEPAKOTE [Concomitant]
  4. LYRICA [Concomitant]
  5. DEPO-PROVERA SUSPENSION/INJ [Concomitant]
  6. MULTILEX TAB [Concomitant]
  7. CALCIUM GLUCONATE [Concomitant]
  8. MIRALAX [Concomitant]
  9. DIASTAT ADULT [Concomitant]

REACTIONS (11)
  - ANKLE FRACTURE [None]
  - BRUXISM [None]
  - CONVULSION [None]
  - CRYING [None]
  - DRUG INTERACTION [None]
  - DRUG LEVEL INCREASED [None]
  - LOSS OF CONSCIOUSNESS [None]
  - MOANING [None]
  - PAIN [None]
  - TENSION [None]
  - TREMOR [None]
